FAERS Safety Report 13984211 (Version 7)
Quarter: 2020Q4

REPORT INFORMATION
  Report Type: Spontaneous
  Country: JP (occurrence: JP)
  Receive Date: 20170918
  Receipt Date: 20201102
  Transmission Date: 20210113
  Serious: Yes (Other)
  Sender: FDA-Public Use
  Company Number: JP-ASTRAZENECA-2016SE75156

PATIENT
  Sex: Male

DRUGS (2)
  1. NEXIUM [Interacting]
     Active Substance: ESOMEPRAZOLE MAGNESIUM
     Indication: GASTRIC ULCER
     Dosage: DOSE UNKNOWN
     Route: 048
  2. IRESSA [Suspect]
     Active Substance: GEFITINIB
     Indication: LUNG NEOPLASM MALIGNANT
     Route: 048
     Dates: start: 2015

REACTIONS (48)
  - Nasopharyngitis [Not Recovered/Not Resolved]
  - Metastases to pleura [Unknown]
  - Tumour marker increased [Unknown]
  - Dry skin [Unknown]
  - Speech disorder [Unknown]
  - Eyelid ptosis [Unknown]
  - Hypoaesthesia [Unknown]
  - Ingrowing nail [Recovering/Resolving]
  - Induration [Unknown]
  - Nasal congestion [Unknown]
  - Micturition frequency decreased [Unknown]
  - Tumour marker abnormal [Unknown]
  - Abdominal pain [Unknown]
  - Nocturia [Unknown]
  - Skin discolouration [Unknown]
  - Nail disorder [Unknown]
  - Pyrexia [Unknown]
  - Skin exfoliation [Unknown]
  - Drug ineffective [Unknown]
  - Pruritus [Unknown]
  - Anaemia [Unknown]
  - Pain in extremity [Unknown]
  - Paraesthesia [Unknown]
  - Rhinorrhoea [Unknown]
  - Eye discharge [Unknown]
  - Dyspnoea [Unknown]
  - Faeces discoloured [Unknown]
  - Sputum increased [Unknown]
  - Inhibitory drug interaction [Unknown]
  - Acne [Unknown]
  - Musculoskeletal stiffness [Unknown]
  - Circumoral oedema [Unknown]
  - Papule [Unknown]
  - Dry mouth [Unknown]
  - Rash [Unknown]
  - Tongue oedema [Unknown]
  - Peripheral swelling [Unknown]
  - Sneezing [Unknown]
  - Furuncle [Unknown]
  - Urinary incontinence [Unknown]
  - Epistaxis [Unknown]
  - Eye pain [Unknown]
  - Dehydration [Unknown]
  - Carcinoembryonic antigen increased [Unknown]
  - Dyspepsia [Unknown]
  - Skin odour abnormal [Unknown]
  - Urine output decreased [Unknown]
  - Product prescribing error [Unknown]

NARRATIVE: CASE EVENT DATE: 201908
